FAERS Safety Report 15598657 (Version 2)
Quarter: 2018Q4

REPORT INFORMATION
  Report Type: Spontaneous
  Country: IN (occurrence: IN)
  Receive Date: 20181108
  Receipt Date: 20181126
  Transmission Date: 20190205
  Serious: Yes (Hospitalization)
  Sender: FDA-Public Use
  Company Number: PHHY2018IN145927

PATIENT
  Age: 48 Year
  Sex: Male
  Weight: 65 kg

DRUGS (4)
  1. PREGABALIN. [Concomitant]
     Active Substance: PREGABALIN
     Indication: TRIGEMINAL NEURALGIA
     Dosage: 75 MG, QD
     Route: 065
  2. CALCIUM [Concomitant]
     Active Substance: CALCIUM
     Indication: PRODUCT USED FOR UNKNOWN INDICATION
     Dosage: 1 G, QD
     Route: 048
  3. CARBAMAZEPINE. [Suspect]
     Active Substance: CARBAMAZEPINE
     Indication: TRIGEMINAL NEURALGIA
     Dosage: 200 MG, BID
     Route: 048
  4. CALCITRIOL. [Concomitant]
     Active Substance: CALCITRIOL
     Indication: PRODUCT USED FOR UNKNOWN INDICATION
     Dosage: 0.25 MCG,ONCE DAILY
     Route: 065

REACTIONS (7)
  - Trousseau^s sign [Recovering/Resolving]
  - Tetany [Recovering/Resolving]
  - Muscle spasticity [Recovering/Resolving]
  - Chvostek^s sign [Recovering/Resolving]
  - Therapy partial responder [Unknown]
  - Hypocalcaemia [Recovering/Resolving]
  - Paraesthesia [Recovering/Resolving]
